FAERS Safety Report 8181040-6 (Version None)
Quarter: 2012Q1

REPORT INFORMATION
  Report Type: 
  Country: None (occurrence: None)
  Receive Date: 20120302
  Receipt Date: 20120228
  Transmission Date: 20120608
  Serious: Yes (Other)
  Sender: FDA-Public Use
  Company Number: US-PFIZER INC-2012047151

PATIENT

DRUGS (2)
  1. LIPITOR [Suspect]
     Dosage: UNK
     Route: 065
  2. PROTONIX [Suspect]
     Dosage: UNK
     Route: 065

REACTIONS (4)
  - IMPAIRED DRIVING ABILITY [None]
  - DYSGRAPHIA [None]
  - SURGERY [None]
  - MOTOR DYSFUNCTION [None]
